FAERS Safety Report 10254846 (Version 1)
Quarter: 2014Q2

REPORT INFORMATION
  Report Type: Spontaneous
  Country: KR (occurrence: KR)
  Receive Date: 20140624
  Receipt Date: 20140624
  Transmission Date: 20141212
  Serious: Yes (Death)
  Sender: FDA-Public Use
  Company Number: KR-JNJFOC-20140608927

PATIENT
  Age: 71 Year
  Sex: Male

DRUGS (4)
  1. ZYTIGA [Suspect]
     Indication: PROSTATE CANCER METASTATIC
     Route: 048
     Dates: start: 20120829, end: 20130924
  2. LUTEINIZING HORMONE RELEASING HORMONE AGONIST [Suspect]
     Indication: PROSTATE CANCER METASTATIC
     Route: 065
     Dates: start: 200707
  3. LUTEINIZING HORMONE RELEASING HORMONE AGONIST [Suspect]
     Indication: PROSTATE CANCER METASTATIC
     Route: 065
     Dates: start: 20120323, end: 20120829
  4. LUTEINIZING HORMONE RELEASING HORMONE AGONIST [Suspect]
     Indication: PROSTATE CANCER METASTATIC
     Route: 065
     Dates: start: 20070702

REACTIONS (2)
  - Death [Fatal]
  - Prostatic specific antigen increased [Unknown]
